FAERS Safety Report 8947772 (Version 1)
Quarter: 2012Q4

REPORT INFORMATION
  Report Type: 
  Country: GB (occurrence: GB)
  Receive Date: 20121204
  Receipt Date: 20121204
  Transmission Date: 20130627
  Serious: Yes (Other)
  Sender: FDA-Public Use
  Company Number: GB-TEVA-372187ISR

PATIENT
  Age: 77 Year
  Sex: Male
  Weight: 104 kg

DRUGS (22)
  1. CLARITHROMYCIN [Suspect]
     Dates: start: 20121109
  2. VALSARTAN [Concomitant]
     Dates: start: 20120618
  3. SIMVASTATIN [Concomitant]
     Dates: start: 20120618
  4. NOVOMIX [Concomitant]
     Dates: start: 20120717, end: 20120814
  5. NOVOMIX [Concomitant]
     Dates: start: 20120905, end: 20121103
  6. ASPIRIN [Concomitant]
     Dates: start: 20120717
  7. ATENOLOL [Concomitant]
     Dates: start: 20120717
  8. DOCUSATE SODIUM [Concomitant]
     Dates: start: 20120717, end: 20120814
  9. QUININE [Concomitant]
     Dates: start: 20120731
  10. METFORMIN [Concomitant]
     Dates: start: 20120731
  11. GABAPENTIN [Concomitant]
     Dates: start: 20120731
  12. OMEPRAZOLE [Concomitant]
     Dates: start: 20120814
  13. FLUCONAZOLE [Concomitant]
     Dates: start: 20120814, end: 20120828
  14. DIFLUCAN [Concomitant]
     Dates: start: 20120817, end: 20120824
  15. MACROGOL [Concomitant]
     Dates: start: 20120906, end: 20121006
  16. MACROGOL [Concomitant]
     Dates: start: 20121109
  17. INADINE [Concomitant]
     Dates: start: 20120925, end: 20121009
  18. INADINE [Concomitant]
     Dates: start: 20121023, end: 20121024
  19. PARACETAMOL [Concomitant]
     Dates: start: 20121006
  20. DIPROBASE [Concomitant]
     Dates: start: 20121006, end: 20121007
  21. CODEINE PHOSPHATE [Concomitant]
     Dates: start: 20121022, end: 20121023
  22. LOCORTEN-VIOFORM [Concomitant]
     Dates: start: 20121030, end: 20121113

REACTIONS (1)
  - Myalgia [Unknown]
